FAERS Safety Report 15225997 (Version 2)
Quarter: 2019Q2

REPORT INFORMATION
  Report Type: Spontaneous
  Country: FR (occurrence: FR)
  Receive Date: 20180801
  Receipt Date: 20190418
  Transmission Date: 20190711
  Serious: Yes (Other)
  Sender: FDA-Public Use
  Company Number: FR-GILEAD-2018-0352717

PATIENT
  Age: 79 Year
  Sex: Male

DRUGS (1)
  1. AMBRISENTAN [Suspect]
     Active Substance: AMBRISENTAN
     Indication: PULMONARY ARTERIAL HYPERTENSION
     Dosage: 5 MG, QD
     Route: 048
     Dates: start: 201803, end: 20180612

REACTIONS (3)
  - Cholestasis [Recovering/Resolving]
  - Hepatocellular injury [Recovering/Resolving]
  - Ocular icterus [Recovering/Resolving]

NARRATIVE: CASE EVENT DATE: 20180321
